FAERS Safety Report 14544350 (Version 3)
Quarter: 2018Q1

REPORT INFORMATION
  Report Type: Report from Study
  Country: None (occurrence: NL)
  Receive Date: 20180216
  Receipt Date: 20180302
  Transmission Date: 20180509
  Serious: Yes (Death, Hospitalization)
  Sender: FDA-Public Use
  Company Number: NL-ABBVIE-18K-114-2260172-00

PATIENT
  Age: 84 Year
  Sex: Female

DRUGS (1)
  1. DUODOPA [Suspect]
     Active Substance: CARBIDOPA\LEVODOPA
     Indication: PARKINSON^S DISEASE
     Dosage: MD 7.9, CD 2.8, ED 1
     Route: 050
     Dates: start: 20160113

REACTIONS (8)
  - Urinary tract infection [Not Recovered/Not Resolved]
  - Eye disorder [Not Recovered/Not Resolved]
  - Intervertebral disc protrusion [Not Recovered/Not Resolved]
  - Decreased appetite [Not Recovered/Not Resolved]
  - Death [Fatal]
  - Malaise [Not Recovered/Not Resolved]
  - Dyskinesia [Not Recovered/Not Resolved]
  - Abnormal dreams [Not Recovered/Not Resolved]

NARRATIVE: CASE EVENT DATE: 2018
